FAERS Safety Report 24359174 (Version 1)
Quarter: 2024Q3

REPORT INFORMATION
  Report Type: Report from Study
  Country: CN (occurrence: CN)
  Receive Date: 20240924
  Receipt Date: 20240924
  Transmission Date: 20241017
  Serious: No
  Sender: Unknown Manufacturer
  Company Number: CN-ROCHE-3524880

PATIENT
  Age: 44 Year
  Sex: Female

DRUGS (3)
  1. PRALSETINIB [Suspect]
     Active Substance: PRALSETINIB
     Indication: Non-small cell lung cancer
     Dates: start: 202312
  2. PRALSETINIB [Suspect]
     Active Substance: PRALSETINIB
  3. PRALSETINIB [Suspect]
     Active Substance: PRALSETINIB

REACTIONS (4)
  - Hypoaesthesia [Recovering/Resolving]
  - Head discomfort [Recovering/Resolving]
  - Asthenia [Recovering/Resolving]
  - Constipation [Recovering/Resolving]

NARRATIVE: CASE EVENT DATE: 20240118
